FAERS Safety Report 19661947 (Version 1)
Quarter: 2021Q3

REPORT INFORMATION
  Report Type: Report from Study
  Country: EG (occurrence: EG)
  Receive Date: 20210805
  Receipt Date: 20210805
  Transmission Date: 20211014
  Serious: Yes (Hospitalization, Other)
  Sender: FDA-Public Use
  Company Number: NVSC2021EG171626

PATIENT
  Age: 42 Year
  Sex: Male

DRUGS (2)
  1. ENTRESTO [Suspect]
     Active Substance: SACUBITRIL\VALSARTAN
     Indication: CARDIAC FAILURE
     Dosage: 1 DF, BID
     Route: 048
     Dates: start: 20200601, end: 20210713
  2. ENTRESTO [Suspect]
     Active Substance: SACUBITRIL\VALSARTAN
     Dosage: 1 DF, QD (FOR 15 DAYS)
     Route: 048
     Dates: start: 20210713

REACTIONS (10)
  - Dyspnoea [Not Recovered/Not Resolved]
  - Angina pectoris [Not Recovered/Not Resolved]
  - Pulmonary oedema [Recovered/Resolved]
  - Cardiac disorder [Unknown]
  - Inappropriate schedule of product administration [Not Recovered/Not Resolved]
  - Mental disorder [Not Recovered/Not Resolved]
  - Hypotension [Recovered/Resolved]
  - Gait disturbance [Not Recovered/Not Resolved]
  - Chest discomfort [Recovered/Resolved]
  - Echocardiogram abnormal [Unknown]

NARRATIVE: CASE EVENT DATE: 20210101
